FAERS Safety Report 18303424 (Version 2)
Quarter: 2020Q3

REPORT INFORMATION
  Report Type: Other
  Country: IT (occurrence: IT)
  Receive Date: 20200924
  Receipt Date: 20200928
  Transmission Date: 20201103
  Serious: Yes (Death)
  Sender: FDA-Public Use
  Company Number: IT-ROCHE-2681944

PATIENT
  Age: 77 Year
  Sex: Female

DRUGS (4)
  1. ACTILYSE [Suspect]
     Active Substance: ALTEPLASE
     Indication: ATRIAL SEPTAL DEFECT
  2. ACTILYSE [Suspect]
     Active Substance: ALTEPLASE
     Indication: MYOCARDIAL INFARCTION
  3. ACTILYSE [Suspect]
     Active Substance: ALTEPLASE
     Indication: PULMONARY EMBOLISM
     Route: 040
  4. ACTILYSE [Suspect]
     Active Substance: ALTEPLASE
     Indication: PARADOXICAL EMBOLISM

REACTIONS (1)
  - Pulseless electrical activity [Fatal]
